FAERS Safety Report 6588764-2 (Version None)
Quarter: 2010Q1

REPORT INFORMATION
  Report Type: 
  Country: None (occurrence: None)
  Receive Date: 20100212
  Receipt Date: 20100127
  Transmission Date: 20100710
  Serious: Yes (Hospitalization)
  Sender: FDA-Public Use
  Company Number: DSA_42502_2010

PATIENT
  Age: 52 Year
  Sex: Female

DRUGS (7)
  1. ENALAPRIL MALEATE [Suspect]
     Indication: DRUG USE FOR UNKNOWN INDICATION
     Dosage: 5 MG QD ORAL
     Route: 048
     Dates: start: 20040101, end: 20090821
  2. SULFASALAZINE [Suspect]
     Indication: ARTHRITIS
     Dosage: 500 MG QD ORAL, 500 MG BID ORAL, 750 MG BID ORAL, 1000 MG BID ORAL
     Route: 048
     Dates: start: 20090708, end: 20090714
  3. SULFASALAZINE [Suspect]
     Indication: ARTHRITIS
     Dosage: 500 MG QD ORAL, 500 MG BID ORAL, 750 MG BID ORAL, 1000 MG BID ORAL
     Route: 048
     Dates: start: 20090715, end: 20090722
  4. SULFASALAZINE [Suspect]
     Indication: ARTHRITIS
     Dosage: 500 MG QD ORAL, 500 MG BID ORAL, 750 MG BID ORAL, 1000 MG BID ORAL
     Route: 048
     Dates: start: 20090723, end: 20090730
  5. SULFASALAZINE [Suspect]
     Indication: ARTHRITIS
     Dosage: 500 MG QD ORAL, 500 MG BID ORAL, 750 MG BID ORAL, 1000 MG BID ORAL
     Route: 048
     Dates: start: 20090731, end: 20090819
  6. CETIRIZINE HYDROCHLORIDE [Concomitant]
  7. PREDNISONE [Concomitant]

REACTIONS (2)
  - AGRANULOCYTOSIS [None]
  - BONE MARROW TOXICITY [None]
